FAERS Safety Report 13030186 (Version 4)
Quarter: 2018Q2

REPORT INFORMATION
  Report Type: Other
  Country: CA (occurrence: CA)
  Receive Date: 20161215
  Receipt Date: 20180422
  Transmission Date: 20180711
  Serious: Yes (Other)
  Sender: FDA-Public Use
  Company Number: CA-APOTEX-2016AP015529

PATIENT
  Age: 26 Year
  Sex: Male

DRUGS (2)
  1. APO-CLONAZEPAM [Suspect]
     Active Substance: CLONAZEPAM
     Indication: EPILEPSY
     Dosage: 4 MG, BID
     Route: 065
  2. PMS-CLONAZEPAM [Suspect]
     Active Substance: CLONAZEPAM
     Indication: EPILEPSY
     Dosage: 4 MG, BID
     Route: 065

REACTIONS (3)
  - Condition aggravated [Recovered/Resolved]
  - Seizure [Recovered/Resolved]
  - Drug ineffective [Recovered/Resolved]
